FAERS Safety Report 23790015 (Version 5)
Quarter: 2025Q4

REPORT INFORMATION
  Report Type: Spontaneous
  Country: EU (occurrence: EU)
  Receive Date: 20240426
  Receipt Date: 20251012
  Transmission Date: 20260118
  Serious: Yes (Hospitalization, Other)
  Sender: ALEXION PHARMACEUTICALS
  Company Number: 2024A098245

PATIENT
  Age: 64 Year
  Sex: Female
  Weight: 54 kg

DRUGS (24)
  1. ROSUVASTATIN [Interacting]
     Active Substance: ROSUVASTATIN
     Indication: Blood cholesterol increased
     Dosage: 50 MILLIGRAM
     Route: 065
  2. ROSUVASTATIN [Interacting]
     Active Substance: ROSUVASTATIN
     Dosage: 5 MILLIGRAM
     Route: 065
  3. ZEJULA [Interacting]
     Active Substance: NIRAPARIB
     Indication: Ovarian cancer
     Dosage: 75 MILLIGRAM, 2/WEEK
     Route: 065
  4. ZEJULA [Interacting]
     Active Substance: NIRAPARIB
     Indication: Ovarian cancer
     Dosage: 125 MILLIGRAM, 1/WEEK
     Route: 065
  5. ZEJULA [Interacting]
     Active Substance: NIRAPARIB
     Dosage: 175 MILLIGRAM, 1/WEEK
     Route: 065
  6. ZEJULA [Interacting]
     Active Substance: NIRAPARIB
     Dosage: UNK
     Route: 065
  7. ZEJULA [Interacting]
     Active Substance: NIRAPARIB
     Dosage: 100 MILLIGRAM
  8. ZEJULA [Interacting]
     Active Substance: NIRAPARIB
     Dosage: 100 MILLIGRAM, 2/WEEK
     Route: 065
  9. ZEJULA [Interacting]
     Active Substance: NIRAPARIB
     Dosage: 190 MILLIGRAM, 1/DAY
     Route: 065
  10. ZEJULA [Interacting]
     Active Substance: NIRAPARIB
     Dosage: 200 MILLIGRAM, 1/DAY
     Route: 065
  11. ZEJULA [Interacting]
     Active Substance: NIRAPARIB
     Dosage: 150 MILLIGRAM, 1/DAY
     Route: 065
  12. ZEJULA [Interacting]
     Active Substance: NIRAPARIB
     Dosage: 150 MILLIGRAM, 1/DAY
     Route: 065
  13. ZEJULA [Interacting]
     Active Substance: NIRAPARIB
     Dosage: 50 MILLIGRAM
     Route: 065
  14. ZEJULA [Interacting]
     Active Substance: NIRAPARIB
     Dosage: 75 MILLIGRAM, 2/WEEK
     Route: 065
  15. ZEJULA [Interacting]
     Active Substance: NIRAPARIB
     Dosage: 125 MILLIGRAM, 1/WEEK
     Route: 065
  16. ZEJULA [Interacting]
     Active Substance: NIRAPARIB
     Dosage: 175 MILLIGRAM, 1/WEEK
     Route: 065
  17. ZEJULA [Interacting]
     Active Substance: NIRAPARIB
     Dosage: 100 MILLIGRAM, 2/WEEK
     Route: 065
  18. ZEJULA [Interacting]
     Active Substance: NIRAPARIB
     Dosage: 190 MILLIGRAM, 1/DAY
     Route: 065
  19. ZEJULA [Interacting]
     Active Substance: NIRAPARIB
     Dosage: 200 MILLIGRAM, 1/DAY
     Route: 065
  20. ZEJULA [Interacting]
     Active Substance: NIRAPARIB
     Dosage: 150 MILLIGRAM, 1/DAY
     Route: 065
  21. ZEJULA [Interacting]
     Active Substance: NIRAPARIB
     Dosage: 150 MILLIGRAM, 1/DAY
     Route: 065
  22. ASPIRIN [Concomitant]
     Active Substance: ASPIRIN
     Indication: Product used for unknown indication
     Dosage: 50 MILLIGRAM
  23. ACLASTA [Concomitant]
     Active Substance: ZOLEDRONIC ACID
     Indication: Product used for unknown indication
     Dosage: UNK
     Route: 065
  24. Dekristolvit d3 [Concomitant]
     Indication: Product used for unknown indication
     Dosage: 2000 UNK
     Route: 065

REACTIONS (60)
  - Myalgia [Unknown]
  - Drug interaction [Unknown]
  - Hypoacusis [Recovered/Resolved]
  - Disturbance in attention [Unknown]
  - Heart rate abnormal [Recovering/Resolving]
  - Agitation [Unknown]
  - Arthralgia [Recovered/Resolved]
  - Condition aggravated [Unknown]
  - Gastric dilatation [Unknown]
  - Abdominal discomfort [Unknown]
  - Gastrointestinal pain [Recovered/Resolved]
  - Nausea [Unknown]
  - Off label use [Unknown]
  - Wrong technique in product usage process [Unknown]
  - Red blood cell count decreased [Unknown]
  - Platelet count increased [Unknown]
  - Blood cholesterol increased [Unknown]
  - Osteoporosis [Recovering/Resolving]
  - Anaemia [Unknown]
  - Weight increased [Unknown]
  - Tumour marker increased [Recovering/Resolving]
  - Blood albumin increased [Recovering/Resolving]
  - Cerebrovascular accident [Recovered/Resolved]
  - Dyspnoea [Unknown]
  - Restlessness [Unknown]
  - Blood pressure increased [Not Recovered/Not Resolved]
  - Insomnia [Unknown]
  - Blood pressure fluctuation [Unknown]
  - Headache [Not Recovered/Not Resolved]
  - Dizziness [Unknown]
  - Hyperhidrosis [Unknown]
  - Motion sickness [Unknown]
  - Vision blurred [Recovered/Resolved]
  - Seroma [Unknown]
  - Cardiac murmur [Recovered/Resolved]
  - Fatigue [Not Recovered/Not Resolved]
  - Musculoskeletal chest pain [Not Recovered/Not Resolved]
  - Abdominal distension [Unknown]
  - Blood alkaline phosphatase increased [Recovering/Resolving]
  - Liver disorder [Unknown]
  - Abdominal pain upper [Recovered/Resolved]
  - Weight decreased [Unknown]
  - Depression [Unknown]
  - Sleep disorder [Unknown]
  - Palpitations [Unknown]
  - Gamma-glutamyltransferase increased [Unknown]
  - Blood calcium increased [Recovering/Resolving]
  - Pain in extremity [Recovered/Resolved]
  - Vascular calcification [Unknown]
  - Blood lactate dehydrogenase increased [Unknown]
  - Hepatic pain [Not Recovered/Not Resolved]
  - Biliary colic [Not Recovered/Not Resolved]
  - Cholelithiasis [Unknown]
  - Sudden hearing loss [Recovered/Resolved]
  - Neuropathy peripheral [Recovered/Resolved]
  - Pyrexia [Unknown]
  - Incisional hernia [Unknown]
  - COVID-19 [Unknown]
  - Platelet disorder [Unknown]
  - Renal disorder [Unknown]

NARRATIVE: CASE EVENT DATE: 20230427
